FAERS Safety Report 18348104 (Version 1)
Quarter: 2020Q4

REPORT INFORMATION
  Report Type: Other
  Country: US (occurrence: US)
  Receive Date: 20201006
  Receipt Date: 20201006
  Transmission Date: 20210114
  Serious: Yes (Other)
  Sender: FDA-Public Use
  Company Number: US-ROCHE-2686480

PATIENT
  Sex: Female
  Weight: 112.14 kg

DRUGS (13)
  1. RITUXAN [Suspect]
     Active Substance: RITUXIMAB
     Indication: MULTIPLE SCLEROSIS
     Route: 042
  2. LISINOPRIL. [Concomitant]
     Active Substance: LISINOPRIL
     Dosage: TAKE 1 TABLET BY MOUTH DAILY
     Route: 048
  3. TECFIDERA [Concomitant]
     Active Substance: DIMETHYL FUMARATE
     Dates: start: 201411
  4. OXYCODONE [Concomitant]
     Active Substance: OXYCODONE
     Indication: VOMITING
  5. AVONEX [Concomitant]
     Active Substance: INTERFERON BETA-1A
     Dates: start: 200111
  6. OXYCODONE [Concomitant]
     Active Substance: OXYCODONE
     Indication: NAUSEA
  7. MORTIN [Concomitant]
     Active Substance: SULFAMETHOXAZOLE\TRIMETHOPRIM
     Route: 048
  8. DITROPAN XL [Concomitant]
     Active Substance: OXYBUTYNIN CHLORIDE
     Dosage: TAKE 1 TABLET BY MOUTH DAILY
     Route: 048
  9. TYLENOL [Concomitant]
     Active Substance: ACETAMINOPHEN
     Route: 050
  10. AUBAGIO [Concomitant]
     Active Substance: TERIFLUNOMIDE
     Dates: start: 201703
  11. METHOTREXATE. [Concomitant]
     Active Substance: METHOTREXATE
  12. HYDROCODONE [Concomitant]
     Active Substance: HYDROCODONE
     Indication: NAUSEA
  13. HYDROCODONE [Concomitant]
     Active Substance: HYDROCODONE
     Indication: VOMITING

REACTIONS (12)
  - Memory impairment [Unknown]
  - Neurogenic bladder [Unknown]
  - Depression [Unknown]
  - Vulval cancer [Unknown]
  - Intentional product use issue [Unknown]
  - Fatigue [Unknown]
  - Gait disturbance [Unknown]
  - Off label use [Unknown]
  - Pain [Unknown]
  - Hypertonic bladder [Unknown]
  - Insomnia [Unknown]
  - Coordination abnormal [Unknown]
